FAERS Safety Report 6559639-X (Version None)
Quarter: 2010Q1

REPORT INFORMATION
  Report Type: 
  Country: None (occurrence: None)
  Receive Date: 20100129
  Receipt Date: 20090910
  Transmission Date: 20100710
  Serious: No
  Sender: FDA-Public Use
  Company Number: US-ABBOTT-09P-163-0596422-00

PATIENT
  Sex: Female
  Weight: 67.646 kg

DRUGS (2)
  1. HUMIRA [Suspect]
     Indication: PSORIATIC ARTHROPATHY
     Dates: start: 20090602
  2. HUMIRA [Suspect]
     Dosage: PRE-FILLED SYRINGE

REACTIONS (2)
  - DRUG DOSE OMISSION [None]
  - INJECTION SITE HAEMATOMA [None]
